FAERS Safety Report 24919373 (Version 1)
Quarter: 2025Q1

REPORT INFORMATION
  Report Type: Spontaneous
  Country: US (occurrence: US)
  Receive Date: 20250204
  Receipt Date: 20250204
  Transmission Date: 20250408
  Serious: No
  Sender: Kenvue
  Company Number: US-KENVUE-20250103229

PATIENT
  Age: 58 Year
  Sex: Female

DRUGS (2)
  1. WOMENS ROGAINE UNSCENTED [Suspect]
     Active Substance: MINOXIDIL
     Indication: Product used for unknown indication
     Dosage: A CAPFUL TWICE A DAY AT THE BEGINNING THEN WENT TO USING IT ONCE A DAY , ONCE A DAY
     Route: 061
     Dates: start: 20250101, end: 202501
  2. WOMENS ROGAINE UNSCENTED [Suspect]
     Active Substance: MINOXIDIL
     Dosage: A CAPFUL TWICE A DAY AT THE BEGINNING THEN WENT TO USING IT ONCE A DAY , ONCE A DAY
     Route: 061
     Dates: start: 202501, end: 202501

REACTIONS (3)
  - Application site pain [Recovering/Resolving]
  - Overdose [Unknown]
  - Inappropriate schedule of product administration [Unknown]

NARRATIVE: CASE EVENT DATE: 20250101
